FAERS Safety Report 20894943 (Version 2)
Quarter: 2022Q3

REPORT INFORMATION
  Report Type: Spontaneous
  Country: US (occurrence: US)
  Receive Date: 20220531
  Receipt Date: 20220705
  Transmission Date: 20221027
  Serious: Yes (Disabling, Other)
  Sender: FDA-Public Use
  Company Number: US-ALIMERA SCIENCES INC.-US-A16013-22-000116

PATIENT
  Age: 84 Year
  Sex: Male

DRUGS (1)
  1. ILUVIEN [Suspect]
     Active Substance: FLUOCINOLONE ACETONIDE
     Indication: Diabetic retinal oedema
     Dosage: 0.25 MICROGRAM, QD -RIGHT EYE
     Route: 031
     Dates: start: 20200304

REACTIONS (5)
  - Blindness [Unknown]
  - Glaucoma drainage device placement [Recovered/Resolved]
  - Choroidal detachment [Unknown]
  - Intraocular pressure increased [Unknown]
  - Visual impairment [Not Recovered/Not Resolved]

NARRATIVE: CASE EVENT DATE: 20210201
